FAERS Safety Report 10953420 (Version 1)
Quarter: 2015Q1

REPORT INFORMATION
  Report Type: Spontaneous
  Country: US (occurrence: US)
  Receive Date: 20150325
  Receipt Date: 20150325
  Transmission Date: 20150721
  Serious: Yes (Other)
  Sender: FDA-Public Use
  Company Number: US-JNJFOC-20150309020

PATIENT

DRUGS (7)
  1. DOXORUBICIN [Suspect]
     Active Substance: DOXORUBICIN
     Indication: NEOPLASM MALIGNANT
     Route: 042
  2. EPIRUBICIN [Concomitant]
     Active Substance: EPIRUBICIN
     Indication: NEOPLASM MALIGNANT
     Route: 065
  3. IDARUBICIN [Concomitant]
     Active Substance: IDARUBICIN
     Indication: NEOPLASM MALIGNANT
     Route: 065
  4. DEXRAZOXANE. [Suspect]
     Active Substance: DEXRAZOXANE
     Indication: CARDIOVASCULAR EVENT PROPHYLAXIS
     Route: 042
  5. MITOXANTRONE [Concomitant]
     Active Substance: MITOXANTRONE HYDROCHLORIDE
     Indication: NEOPLASM MALIGNANT
     Route: 065
  6. DAUNORUBICIN [Concomitant]
     Active Substance: DAUNORUBICIN
     Indication: NEOPLASM MALIGNANT
     Route: 065
  7. ETOPOSIDE. [Concomitant]
     Active Substance: ETOPOSIDE
     Indication: NEOPLASM MALIGNANT
     Route: 042

REACTIONS (2)
  - Acute myeloid leukaemia [Unknown]
  - Product use issue [Unknown]
